FAERS Safety Report 20148516 (Version 2)
Quarter: 2021Q4

REPORT INFORMATION
  Report Type: Spontaneous
  Country: US (occurrence: US)
  Receive Date: 20211205
  Receipt Date: 20211230
  Transmission Date: 20220303
  Serious: Yes (Other)
  Sender: FDA-Public Use
  Company Number: US-BAUSCH-BL-2021-039020

PATIENT
  Age: 69 Year
  Sex: Female
  Weight: 63.560 kg

DRUGS (3)
  1. LUMIFY [Suspect]
     Active Substance: BRIMONIDINE TARTRATE
     Indication: Dry eye
     Dosage: STARTED ABOUT 2 YEARS AGO (1 DROP IN EACH EYE)
     Route: 047
     Dates: start: 2019
  2. LUMIFY [Suspect]
     Active Substance: BRIMONIDINE TARTRATE
     Indication: Ocular hyperaemia
     Dosage: AFTER PANDEMIC (1 DROP IN EACH EYE) ONCE OR TWICE A WEEK.
     Route: 047
     Dates: end: 2021
  3. SOOTHE PRESERVATIVE FREE LUBRICANT EYE DROPS [Concomitant]
     Indication: Dry eye
     Route: 047

REACTIONS (6)
  - Eye haemorrhage [Unknown]
  - Instillation site thrombosis [Unknown]
  - Instillation site pain [Unknown]
  - Instillation site pruritus [Unknown]
  - Instillation site lacrimation [Unknown]
  - Expired product administered [Unknown]

NARRATIVE: CASE EVENT DATE: 20210101
